FAERS Safety Report 18698197 (Version 1)
Quarter: 2021Q1

REPORT INFORMATION
  Report Type: Spontaneous
  Country: CA (occurrence: CA)
  Receive Date: 20210105
  Receipt Date: 20210105
  Transmission Date: 20210419
  Serious: Yes (Hospitalization)
  Sender: FDA-Public Use
  Company Number: CA-ROCHE-2741955

PATIENT
  Age: 76 Year
  Sex: Female
  Weight: 90 kg

DRUGS (9)
  1. TELMISARTAN. [Concomitant]
     Active Substance: TELMISARTAN
  2. RITUXAN [Suspect]
     Active Substance: RITUXIMAB
     Indication: HAIRY CELL LEUKAEMIA
     Dosage: SINGLE DOSE VIAL ? 120 MG/ML SOLUTION SUBCUTANEOUS
     Route: 058
  3. ROSUVASTATIN. [Concomitant]
     Active Substance: ROSUVASTATIN
  4. VALACYCLOVIR [Concomitant]
     Active Substance: VALACYCLOVIR HYDROCHLORIDE
  5. CLADRIBINE. [Concomitant]
     Active Substance: CLADRIBINE
     Route: 042
  6. HCTZ [Concomitant]
     Active Substance: HYDROCHLOROTHIAZIDE
  7. PANTOPRAZOLE [Concomitant]
     Active Substance: PANTOPRAZOLE
  8. TAMSULOSIN [Concomitant]
     Active Substance: TAMSULOSIN
  9. RITUXAN [Suspect]
     Active Substance: RITUXIMAB
     Indication: HAIRY CELL LEUKAEMIA
     Dosage: SINGLE DOSE VIAL ? 120 MG/ML SOLUTION
     Route: 042

REACTIONS (4)
  - Muscular weakness [Recovering/Resolving]
  - Ataxia [Recovering/Resolving]
  - Magnetic resonance imaging brain abnormal [Recovering/Resolving]
  - Progressive multifocal leukoencephalopathy [Recovering/Resolving]
